FAERS Safety Report 9869477 (Version 1)
Quarter: 2014Q1

REPORT INFORMATION
  Report Type: Spontaneous
  Country: US (occurrence: US)
  Receive Date: 20140205
  Receipt Date: 20140205
  Transmission Date: 20141002
  Serious: No
  Sender: FDA-Public Use
  Company Number: US-PFIZER INC-2014027291

PATIENT
  Age: 79 Year
  Sex: Female

DRUGS (2)
  1. XELJANZ [Suspect]
     Indication: RHEUMATOID ARTHRITIS
     Dosage: 5 MG, 2X/DAY
     Route: 048
     Dates: start: 201310, end: 20140107
  2. XELJANZ [Suspect]
     Dosage: 5 MG, 2X/DAY
     Route: 048
     Dates: start: 20140128

REACTIONS (4)
  - Drug dose omission [Unknown]
  - Pain [Unknown]
  - Local swelling [Unknown]
  - Joint swelling [Unknown]
